FAERS Safety Report 7152385-3 (Version None)
Quarter: 2010Q4

REPORT INFORMATION
  Report Type: 
  Country: None (occurrence: None)
  Receive Date: 20101123
  Receipt Date: 20101112
  Transmission Date: 20110411
  Serious: Yes (Hospitalization, Other)
  Sender: FDA-Public Use
  Company Number: 019071

PATIENT
  Sex: Female

DRUGS (6)
  1. LACOSAMIDE [Suspect]
     Indication: EPILEPSY
  2. ERGENYL [Concomitant]
  3. AMLODIPINE BESYLATE [Concomitant]
  4. RAMIPRIL [Concomitant]
  5. SIMVASTATIN [Concomitant]
  6. ACETYLSALICYLIC ACID [Concomitant]

REACTIONS (2)
  - EPILEPSY [None]
  - SYSTEMIC LUPUS ERYTHEMATOSUS [None]
